FAERS Safety Report 8176419-2 (Version None)
Quarter: 2012Q1

REPORT INFORMATION
  Report Type: 
  Country: None (occurrence: None)
  Receive Date: 20120301
  Receipt Date: 20120223
  Transmission Date: 20120608
  Serious: Yes (Hospitalization)
  Sender: FDA-Public Use
  Company Number: JP-SANOFI-AVENTIS-2012SA013557

PATIENT
  Age: 89 Year
  Sex: Female

DRUGS (10)
  1. LASIX [Suspect]
     Route: 048
     Dates: start: 20110512, end: 20110518
  2. DABIGATRAN ETEXILATE [Suspect]
     Route: 048
     Dates: start: 20110512, end: 20110518
  3. DILTIAZEM HYDROCHLORIDE [Suspect]
     Indication: TACHYCARDIA
     Route: 048
     Dates: start: 20110512, end: 20110518
  4. AMLODIPINE BESYLATE [Suspect]
     Route: 048
     Dates: start: 20110512, end: 20110518
  5. ALMARL [Suspect]
     Route: 048
     Dates: start: 20110512, end: 20110518
  6. VALSARTAN/HYDROCHLOROTHIAZIDE [Suspect]
     Route: 048
     Dates: start: 20100902, end: 20110518
  7. DABIGATRAN ETEXILATE [Suspect]
     Route: 065
  8. ALDACTONE [Suspect]
     Route: 048
     Dates: start: 20110127, end: 20110518
  9. DOXAZOSIN MESYLATE [Suspect]
     Route: 048
     Dates: start: 20101021, end: 20110518
  10. ASPENON [Suspect]
     Route: 048
     Dates: start: 20110512, end: 20110518

REACTIONS (4)
  - RENAL FAILURE ACUTE [None]
  - ATRIOVENTRICULAR BLOCK COMPLETE [None]
  - BRADYCARDIA [None]
  - GINGIVAL BLEEDING [None]
